FAERS Safety Report 9907366 (Version 3)
Quarter: 2014Q2

REPORT INFORMATION
  Report Type: Report from Study
  Country: AR (occurrence: AR)
  Receive Date: 20140218
  Receipt Date: 20140527
  Transmission Date: 20141212
  Serious: Yes (Death, Other)
  Sender: FDA-Public Use
  Company Number: AR-US-EMD SERONO, INC.-7269397

PATIENT
  Age: 68 Year
  Sex: Female

DRUGS (1)
  1. REBIF [Suspect]
     Indication: MULTIPLE SCLEROSIS
     Dates: start: 20030413

REACTIONS (4)
  - Lung neoplasm malignant [Fatal]
  - General physical health deterioration [Fatal]
  - Pneumonia [Unknown]
  - Diarrhoea [Recovered/Resolved]
